FAERS Safety Report 8044628-9 (Version None)
Quarter: 2012Q1

REPORT INFORMATION
  Report Type: 
  Country: None (occurrence: None)
  Receive Date: 20120113
  Receipt Date: 20120105
  Transmission Date: 20120608
  Serious: Yes (Other)
  Sender: FDA-Public Use
  Company Number: US-PFIZER INC-2012009515

PATIENT
  Sex: Male

DRUGS (2)
  1. ACETAMINOPHEN AND OXYCODONE HCL [Suspect]
  2. MORPHINE SULFATE [Suspect]
     Route: 065

REACTIONS (2)
  - DELIRIUM [None]
  - MENTAL STATUS CHANGES [None]
